FAERS Safety Report 7393963-6 (Version None)
Quarter: 2011Q2

REPORT INFORMATION
  Report Type: 
  Country: None (occurrence: None)
  Receive Date: 20110405
  Receipt Date: 20100521
  Transmission Date: 20111010
  Serious: No
  Sender: FDA-Public Use
  Company Number: US-AMGEN-KDL413852

PATIENT
  Sex: Male

DRUGS (4)
  1. LEUPROLIDE ACETATE [Concomitant]
     Dosage: UNK UNK, UNK
  2. NEULASTA [Suspect]
     Indication: CHEMOTHERAPY
     Dosage: 3 MG, UNK
     Dates: start: 20090620, end: 20091024
  3. DOCETAXEL [Concomitant]
     Dosage: UNK UNK, UNK
  4. ZOLEDRONIC ACID [Concomitant]
     Dosage: UNK UNK, UNK

REACTIONS (1)
  - DIARRHOEA [None]
